FAERS Safety Report 22236255 (Version 1)
Quarter: 2023Q2

REPORT INFORMATION
  Report Type: Spontaneous
  Country: US (occurrence: None)
  Receive Date: 20230420
  Receipt Date: 20230420
  Transmission Date: 20230722
  Serious: No
  Sender: FDA-Public Use
  Company Number: 2023A085326

PATIENT
  Sex: Female

DRUGS (1)
  1. KOSELUGO [Suspect]
     Active Substance: SELUMETINIB
     Indication: Neurofibromatosis
     Route: 048
     Dates: start: 20230314

REACTIONS (2)
  - Dysphagia [Unknown]
  - Product dose omission issue [Unknown]
